FAERS Safety Report 9433385 (Version 1)
Quarter: 2013Q3

REPORT INFORMATION
  Report Type: Spontaneous
  Country: DE (occurrence: DE)
  Receive Date: 20130731
  Receipt Date: 20130731
  Transmission Date: 20140515
  Serious: Yes (Hospitalization)
  Sender: FDA-Public Use
  Company Number: DE-TEVA-421160GER

PATIENT
  Sex: Female
  Weight: 2.43 kg

DRUGS (1)
  1. VALPROINSAEURE RETARD [Suspect]
     Route: 064

REACTIONS (5)
  - Skull malformation [Unknown]
  - Haemangioma [Unknown]
  - Oxygen saturation decreased [Unknown]
  - Small for dates baby [Unknown]
  - Cardiac septal hypertrophy [Unknown]
